FAERS Safety Report 14416882 (Version 1)
Quarter: 2018Q1

REPORT INFORMATION
  Report Type: Spontaneous
  Country: US (occurrence: US)
  Receive Date: 20180119
  Receipt Date: 20180119
  Transmission Date: 20180509
  Serious: Yes (Hospitalization)
  Sender: FDA-Public Use
  Company Number: None

PATIENT
  Age: 73 Year
  Sex: Female

DRUGS (10)
  1. PIPERACILLIN/TAZOBACTAM [Suspect]
     Active Substance: PIPERACILLIN SODIUM\TAZOBACTAM SODIUM
     Route: 042
  2. COLLAGENASE OINTMENT [Concomitant]
     Active Substance: COLLAGENASE CLOSTRIDIUM HISTOLYTICUM
  3. OXYCODONE [Concomitant]
     Active Substance: OXYCODONE
  4. TPN [Concomitant]
     Active Substance: AMINO ACIDS\DEXTROSE\ELECTROLYTES NOS\SOYBEAN OIL
  5. CEFAZOLIN [Suspect]
     Active Substance: CEFAZOLIN
     Indication: STAPHYLOCOCCAL BACTERAEMIA
     Route: 042
     Dates: start: 20171030, end: 20171101
  6. IBUPROFEN. [Concomitant]
     Active Substance: IBUPROFEN
  7. FUROSEMIDE. [Concomitant]
     Active Substance: FUROSEMIDE
  8. MIDAZOLAM [Concomitant]
     Active Substance: MIDAZOLAM HYDROCHLORIDE
  9. LEVOTHYROXINE. [Concomitant]
     Active Substance: LEVOTHYROXINE
  10. INSULIN [Concomitant]
     Active Substance: INSULIN NOS

REACTIONS (10)
  - Staphylococcal bacteraemia [None]
  - Rash generalised [None]
  - Stevens-Johnson syndrome [None]
  - Duodenal perforation [None]
  - Procedural hypotension [None]
  - Melaena [None]
  - Gastrointestinal haemorrhage [None]
  - Arthralgia [None]
  - Pneumoperitoneum [None]
  - Ulcer [None]

NARRATIVE: CASE EVENT DATE: 20171101
